FAERS Safety Report 6810151-X (Version None)
Quarter: 2010Q2

REPORT INFORMATION
  Report Type: 
  Country: None (occurrence: None)
  Receive Date: 20100630
  Receipt Date: 20100622
  Transmission Date: 20101027
  Serious: Yes (Other)
  Sender: FDA-Public Use
  Company Number: US-SANOFI-AVENTIS-2010SA036888

PATIENT

DRUGS (2)
  1. PLAVIX [Suspect]
     Indication: PERCUTANEOUS CORONARY INTERVENTION
     Dosage: LOADING DOSE
     Route: 065
  2. PLAVIX [Suspect]
     Route: 048

REACTIONS (1)
  - DEVICE OCCLUSION [None]
